FAERS Safety Report 20131691 (Version 1)
Quarter: 2021Q4

REPORT INFORMATION
  Report Type: Spontaneous
  Country: FR (occurrence: FR)
  Receive Date: 20211130
  Receipt Date: 20211130
  Transmission Date: 20220304
  Serious: Yes (Hospitalization)
  Sender: FDA-Public Use
  Company Number: FR-002147023-NVSC2021FR223492

PATIENT
  Sex: Female

DRUGS (2)
  1. ENALAPRIL [Suspect]
     Active Substance: ENALAPRIL
     Indication: Cardiac failure
     Dosage: 2 DOSAGE FORM, QD, (2 TABLETS OF 20 MG)
     Route: 065
  2. SACUBITRIL\VALSARTAN [Suspect]
     Active Substance: SACUBITRIL\VALSARTAN
     Indication: Cardiac failure
     Dosage: 2 DOSAGE FORM, QD, (2 TABLETS OF 24/26 MG)
     Route: 065

REACTIONS (4)
  - Oxygen saturation decreased [Recovered/Resolved]
  - Lung disorder [Recovered/Resolved]
  - Hyperthermia [Recovered/Resolved]
  - Contraindicated product administered [Unknown]
